FAERS Safety Report 6689763-2 (Version None)
Quarter: 2010Q2

REPORT INFORMATION
  Report Type: 
  Country: None (occurrence: None)
  Receive Date: 20100421
  Receipt Date: 20100419
  Transmission Date: 20101027
  Serious: Yes (Life-Threatening)
  Sender: FDA-Public Use
  Company Number: FR-ASTRAZENECA-2010SE13909

PATIENT
  Age: 23807 Day
  Sex: Male

DRUGS (9)
  1. PULMICORT [Suspect]
     Route: 055
  2. LEXOMIL ROCHE [Suspect]
     Route: 048
  3. CISPLATINE MYLAN [Suspect]
     Route: 042
  4. ATARAX [Suspect]
     Route: 048
  5. ATROVENT [Suspect]
     Route: 055
  6. FORLAX [Suspect]
     Route: 048
  7. ALIMTA [Suspect]
     Route: 042
  8. TOPALGIC [Suspect]
     Route: 048
  9. VENTOLIN [Suspect]
     Route: 055

REACTIONS (3)
  - ACUTE RESPIRATORY DISTRESS SYNDROME [None]
  - INTERSTITIAL LUNG DISEASE [None]
  - RADIATION FIBROSIS - LUNG [None]
